FAERS Safety Report 25251136 (Version 1)
Quarter: 2025Q2

REPORT INFORMATION
  Report Type: Spontaneous
  Country: JP (occurrence: JP)
  Receive Date: 20250429
  Receipt Date: 20250429
  Transmission Date: 20250716
  Serious: Yes (Hospitalization, Other)
  Sender: JOHNSON AND JOHNSON
  Company Number: JP-JNJFOC-20241272817

PATIENT
  Age: 78 Year
  Sex: Male
  Weight: 52.9 kg

DRUGS (8)
  1. RYBREVANT [Suspect]
     Active Substance: AMIVANTAMAB-VMJW
     Indication: Non-small cell lung cancer
     Route: 041
     Dates: start: 20241212, end: 20241212
  2. RYBREVANT [Suspect]
     Active Substance: AMIVANTAMAB-VMJW
     Indication: Lung adenocarcinoma
     Route: 041
     Dates: start: 20241213, end: 20241213
  3. RYBREVANT [Suspect]
     Active Substance: AMIVANTAMAB-VMJW
     Route: 041
     Dates: start: 20241219, end: 20241219
  4. RYBREVANT [Suspect]
     Active Substance: AMIVANTAMAB-VMJW
     Route: 041
     Dates: start: 20241226, end: 20241226
  5. RYBREVANT [Suspect]
     Active Substance: AMIVANTAMAB-VMJW
     Route: 041
     Dates: start: 20250110, end: 20250110
  6. CARBOPLATIN [Suspect]
     Active Substance: CARBOPLATIN
     Indication: Non-small cell lung cancer
     Route: 041
  7. PEMETREXED [Suspect]
     Active Substance: PEMETREXED
     Indication: Non-small cell lung cancer
     Route: 041
  8. PREDNISOLONE [Suspect]
     Active Substance: PREDNISOLONE
     Indication: Product used for unknown indication
     Route: 065
     Dates: start: 20250206

REACTIONS (8)
  - Cytopenia [Recovering/Resolving]
  - Malaise [Recovered/Resolved]
  - Pulmonary toxicity [Recovering/Resolving]
  - Pneumomediastinum [Unknown]
  - Platelet count decreased [Recovered/Resolved]
  - Epistaxis [Recovered/Resolved]
  - Peripheral vein thrombosis [Recovering/Resolving]
  - Dry skin [Recovered/Resolved]

NARRATIVE: CASE EVENT DATE: 20241214
